FAERS Safety Report 21970886 (Version 1)
Quarter: 2023Q1

REPORT INFORMATION
  Report Type: Report from Study
  Country: US (occurrence: None)
  Receive Date: 20230209
  Receipt Date: 20230209
  Transmission Date: 20230417
  Serious: Yes (Life-Threatening, Other)
  Sender: FDA-Public Use
  Company Number: US-ROCHE-3054255

PATIENT
  Age: 67 Year
  Sex: Female

DRUGS (4)
  1. ATEZOLIZUMAB [Suspect]
     Active Substance: ATEZOLIZUMAB
     Indication: Invasive breast carcinoma
     Route: 041
  2. PACLITAXEL [Suspect]
     Active Substance: PACLITAXEL
     Indication: Invasive breast carcinoma
     Route: 042
  3. TRASTUZUMAB [Suspect]
     Active Substance: TRASTUZUMAB
     Indication: Invasive breast carcinoma
     Dosage: LOADING DOSE FOLLOWED BY MAINTENANCE DOSE OF 6 MG/KG
     Route: 041
  4. PERTUZUMAB [Suspect]
     Active Substance: PERTUZUMAB
     Indication: Invasive breast carcinoma
     Dosage: LOADING DOSE 840 MG FOLLOWED BY MAINTENANCE DOSE OF 420 MG
     Route: 042

REACTIONS (3)
  - Pneumonitis [Unknown]
  - Febrile neutropenia [Unknown]
  - Neutrophil count decreased [Unknown]

NARRATIVE: CASE EVENT DATE: 20211103
